FAERS Safety Report 7281458-X (Version None)
Quarter: 2011Q1

REPORT INFORMATION
  Report Type: 
  Country: None (occurrence: None)
  Receive Date: 20110208
  Receipt Date: 20110125
  Transmission Date: 20110831
  Serious: Yes (Other)
  Sender: FDA-Public Use
  Company Number: PHHY2011BR03138

PATIENT
  Sex: Male
  Weight: 68 kg

DRUGS (2)
  1. DIOVAN HCT [Suspect]
     Indication: HYPERTENSION
     Dosage: 80/12.5 MG, ONE TABLET DAILY AT MORNING
     Route: 048
     Dates: start: 20050101
  2. LIPITOR [Concomitant]
     Indication: BLOOD CHOLESTEROL
     Dosage: 10 MG,ONE TABLET DAILY
     Route: 048

REACTIONS (4)
  - DIZZINESS [None]
  - RETCHING [None]
  - LABYRINTHITIS [None]
  - FEELING ABNORMAL [None]
